FAERS Safety Report 7558385-3 (Version None)
Quarter: 2011Q2

REPORT INFORMATION
  Report Type: 
  Country: None (occurrence: None)
  Receive Date: 20110620
  Receipt Date: 20110617
  Transmission Date: 20111010
  Serious: Yes (Death, Other)
  Sender: FDA-Public Use
  Company Number: PHEH2006US15190

PATIENT
  Sex: Female
  Weight: 98.413 kg

DRUGS (50)
  1. OXYCONTIN [Concomitant]
     Indication: PAIN
     Dosage: UNK, UNK
  2. DEXAMETHASONE [Concomitant]
  3. BENADRYL [Concomitant]
  4. PRILOSEC [Concomitant]
  5. XANAX [Concomitant]
  6. PROZAC [Concomitant]
  7. CHEMOTHERAPEUTICS NOS [Concomitant]
     Indication: MULTIPLE MYELOMA
     Dosage: UNK, UNK
  8. ZANTAC [Concomitant]
     Indication: GASTROOESOPHAGEAL REFLUX DISEASE
     Dosage: 150 MG, TID
  9. ZYRTEC [Concomitant]
  10. ALBUTEROL SULFATE AUTOHALER [Concomitant]
  11. PRIMAXIN [Concomitant]
  12. EFFEXOR [Concomitant]
     Indication: DEPRESSION
     Dosage: 150 MG, QD
  13. MAGNESIUM [Concomitant]
     Dosage: 500 MG, BID
  14. CYTOXAN [Concomitant]
  15. LASIX [Concomitant]
  16. ADVAIR DISKUS 100/50 [Concomitant]
  17. FLUCONAZOLE [Concomitant]
  18. PROVENTIL [Concomitant]
  19. FOLIC ACID [Concomitant]
     Dosage: 1 MG, QD
  20. GABAPENTIN [Concomitant]
     Indication: PAIN
     Dosage: 300 MG, TID
  21. PYRIDOXINE [Concomitant]
     Dosage: 400 MG, QD
  22. PREDNISONE [Concomitant]
  23. LORAZEPAM [Concomitant]
  24. MOTRIN [Concomitant]
  25. VIOXX [Concomitant]
  26. VITAMIN E [Concomitant]
     Dosage: 1000 IU, QD
  27. THALIDOMIDE [Concomitant]
     Dosage: 200 MG, QHS
  28. MORPHINE SULFATE [Concomitant]
     Dosage: 60 MG, BID
  29. ZOLOFT [Concomitant]
  30. CLARITIN [Concomitant]
  31. CYCLOBENZAPRINE [Concomitant]
  32. VICODIN [Concomitant]
  33. CEFTRIAXONE [Concomitant]
  34. DOLASETRON [Concomitant]
  35. COMPAZINE [Concomitant]
  36. PREMARIN [Concomitant]
  37. PHENERGAN [Concomitant]
  38. CALCITONIN [Concomitant]
  39. AREDIA [Suspect]
     Indication: HYPERCALCAEMIA
  40. ZOMETA [Suspect]
     Dosage: UNK, UNK
  41. SALSALATE [Concomitant]
  42. MAGNESIUM SULFATE [Concomitant]
  43. NEURONTIN [Concomitant]
     Dosage: UNK, UNK
  44. ACYCLOVIR [Concomitant]
     Dosage: 200 MG, BID
  45. AZITHROMYCIN [Concomitant]
  46. WELLBUTRIN [Concomitant]
  47. DOCUSATE [Concomitant]
  48. FILGRASTIM [Concomitant]
  49. MORPHINE [Concomitant]
  50. PROCHLORPERAZINE TAB [Concomitant]

REACTIONS (86)
  - DECREASED INTEREST [None]
  - ORAL PAIN [None]
  - BACK PAIN [None]
  - DENTURE WEARER [None]
  - NEUROPATHY PERIPHERAL [None]
  - OTITIS MEDIA [None]
  - RHINITIS [None]
  - DIARRHOEA [None]
  - TACHYCARDIA [None]
  - ASTHENIA [None]
  - INTERVERTEBRAL DISC PROTRUSION [None]
  - OSTEOPENIA [None]
  - GENERAL PHYSICAL HEALTH DETERIORATION [None]
  - ABDOMINAL DISCOMFORT [None]
  - FATIGUE [None]
  - STOMATITIS [None]
  - DENTAL CARIES [None]
  - UPPER RESPIRATORY TRACT INFECTION [None]
  - SINUS CONGESTION [None]
  - CONTUSION [None]
  - RASH PRURITIC [None]
  - OEDEMA [None]
  - PARATRACHEAL LYMPHADENOPATHY [None]
  - HYPERGLYCAEMIA [None]
  - ACUTE MYELOID LEUKAEMIA [None]
  - PULMONARY OEDEMA [None]
  - ORAL INFECTION [None]
  - NASOPHARYNGITIS [None]
  - ATELECTASIS [None]
  - APPLICATION SITE BURN [None]
  - VOMITING [None]
  - PANCYTOPENIA [None]
  - LUNG NEOPLASM [None]
  - LEUKOCYTOSIS [None]
  - PAIN [None]
  - HEADACHE [None]
  - STRESS [None]
  - DYSPEPSIA [None]
  - MUCOSAL INFLAMMATION [None]
  - PROTEINURIA [None]
  - RENAL CYST [None]
  - INTERVERTEBRAL DISC DEGENERATION [None]
  - HYPERPHOSPHATAEMIA [None]
  - HEPATOSPLENOMEGALY [None]
  - OSTEOPOROSIS [None]
  - DEATH [None]
  - PAIN IN JAW [None]
  - SLEEP DISORDER [None]
  - COUGH [None]
  - SPINAL COMPRESSION FRACTURE [None]
  - WHEEZING [None]
  - CONSTIPATION [None]
  - ROAD TRAFFIC ACCIDENT [None]
  - DEHYDRATION [None]
  - SPINAL OSTEOARTHRITIS [None]
  - BONE LESION [None]
  - ANXIETY [None]
  - MULTIPLE MYELOMA [None]
  - MALAISE [None]
  - PAIN IN EXTREMITY [None]
  - ARTHRALGIA [None]
  - MUSCLE TIGHTNESS [None]
  - DYSPNOEA [None]
  - CHRONIC OBSTRUCTIVE PULMONARY DISEASE [None]
  - ANAEMIA [None]
  - HYPERCALCAEMIA [None]
  - SINUSITIS [None]
  - HYPOMAGNESAEMIA [None]
  - OBSTRUCTIVE AIRWAYS DISORDER [None]
  - CARDIOMEGALY [None]
  - WEIGHT INCREASED [None]
  - OSTEOMYELITIS [None]
  - VIRAL LABYRINTHITIS [None]
  - HOT FLUSH [None]
  - CARDIAC MURMUR [None]
  - HYPONATRAEMIA [None]
  - SKIN FISSURES [None]
  - PLEURAL EFFUSION [None]
  - OSTEONECROSIS OF JAW [None]
  - GINGIVAL INFECTION [None]
  - IMPAIRED HEALING [None]
  - PNEUMONIA [None]
  - HALLUCINATION [None]
  - NAUSEA [None]
  - HYPOCALCAEMIA [None]
  - LEUKAEMIA PLASMACYTIC [None]
